FAERS Safety Report 23068006 (Version 1)
Quarter: 2023Q4

REPORT INFORMATION
  Report Type: Spontaneous
  Country: US (occurrence: US)
  Receive Date: 20231016
  Receipt Date: 20231016
  Transmission Date: 20240110
  Serious: No
  Sender: FDA-Public Use
  Company Number: US-ALKEM LABORATORIES LIMITED-US-ALKEM-2022-14959

PATIENT
  Age: 88 Year

DRUGS (2)
  1. DULOXETINE [Suspect]
     Active Substance: DULOXETINE
     Indication: Neuralgia
     Dosage: 20 MILLIGRAM, HS, AT BEDTIME
     Route: 065
  2. DULOXETINE [Suspect]
     Active Substance: DULOXETINE
     Dosage: 40 MILLIGRAM, QD
     Route: 065

REACTIONS (2)
  - Dizziness [Recovering/Resolving]
  - Fall [Unknown]
